FAERS Safety Report 11597080 (Version 1)
Quarter: 2015Q4

REPORT INFORMATION
  Report Type: Spontaneous
  Country: US (occurrence: None)
  Receive Date: 20151005
  Receipt Date: 20151005
  Transmission Date: 20160304
  Serious: No
  Sender: FDA-Public Use
  Company Number: None

PATIENT
  Age: 21 Year
  Sex: Female
  Weight: 53.98 kg

DRUGS (3)
  1. EFFEXOR [Suspect]
     Active Substance: VENLAFAXINE HYDROCHLORIDE
     Indication: MAJOR DEPRESSION
     Dosage: 1 PILL
     Route: 048
     Dates: start: 20140601, end: 20150927
  2. EFFEXOR [Suspect]
     Active Substance: VENLAFAXINE HYDROCHLORIDE
     Indication: GENERALISED ANXIETY DISORDER
     Dosage: 1 PILL
     Route: 048
     Dates: start: 20140601, end: 20150927
  3. PRENATAL MULTIVITAMINS [Concomitant]
     Active Substance: VITAMINS

REACTIONS (7)
  - Paraesthesia [None]
  - Dizziness [None]
  - Headache [None]
  - Nausea [None]
  - Fatigue [None]
  - Drug withdrawal syndrome [None]
  - Exposure during pregnancy [None]

NARRATIVE: CASE EVENT DATE: 20150927
